FAERS Safety Report 13870375 (Version 1)
Quarter: 2017Q3

REPORT INFORMATION
  Report Type: Report from Study
  Country: None (occurrence: US)
  Receive Date: 20170815
  Receipt Date: 20170815
  Transmission Date: 20171127
  Serious: Yes (Hospitalization, Other)
  Sender: FDA-Public Use
  Company Number: US-ABBVIE-17P-163-1959045-00

PATIENT
  Sex: Male
  Weight: 53.57 kg

DRUGS (6)
  1. VIREAD [Concomitant]
     Active Substance: TENOFOVIR DISOPROXIL FUMARATE
     Indication: HIV INFECTION
  2. MARINOL [Suspect]
     Active Substance: DRONABINOL
     Indication: INCREASED APPETITE
     Route: 048
     Dates: start: 2016
  3. ABACAVIR. [Concomitant]
     Active Substance: ABACAVIR
     Indication: HIV INFECTION
  4. BACTRIM [Concomitant]
     Active Substance: SULFAMETHOXAZOLE\TRIMETHOPRIM
     Indication: HIV INFECTION
  5. NORVIR [Concomitant]
     Active Substance: RITONAVIR
     Indication: HIV INFECTION
  6. PREZISTA [Concomitant]
     Active Substance: DARUNAVIR ETHANOLATE
     Indication: HIV INFECTION

REACTIONS (11)
  - Oesophageal candidiasis [Unknown]
  - Stress [Not Recovered/Not Resolved]
  - Seasonal allergy [Not Recovered/Not Resolved]
  - Weight decreased [Not Recovered/Not Resolved]
  - Cryptosporidiosis infection [Recovered/Resolved]
  - Therapeutic response unexpected [Unknown]
  - Decreased appetite [Not Recovered/Not Resolved]
  - Fungal infection [Unknown]
  - Seizure [Not Recovered/Not Resolved]
  - Lethargy [Recovering/Resolving]
  - Weight gain poor [Not Recovered/Not Resolved]

NARRATIVE: CASE EVENT DATE: 2016
